FAERS Safety Report 12381650 (Version 1)
Quarter: 2016Q2

REPORT INFORMATION
  Report Type: Spontaneous
  Country: US (occurrence: None)
  Receive Date: 20160517
  Receipt Date: 20160517
  Transmission Date: 20160815
  Serious: Yes (Hospitalization)
  Sender: FDA-Public Use
  Company Number: None

PATIENT
  Age: 62 Year
  Sex: Male
  Weight: 69.5 kg

DRUGS (14)
  1. CIPRO [Concomitant]
     Active Substance: CIPROFLOXACIN HYDROCHLORIDE
  2. HARVONI [Suspect]
     Active Substance: LEDIPASVIR\SOFOSBUVIR
     Indication: HEPATITIS C
     Dosage: 400/90MG 1XDAILY PO
     Route: 048
     Dates: start: 20151021, end: 20160121
  3. FOLIC ACID. [Concomitant]
     Active Substance: FOLIC ACID
  4. VITAMIN B12 [Concomitant]
     Active Substance: CYANOCOBALAMIN
  5. METFORMIN [Concomitant]
     Active Substance: METFORMIN HYDROCHLORIDE
  6. KENALOG [Concomitant]
     Active Substance: TRIAMCINOLONE ACETONIDE
  7. REBETOL [Suspect]
     Active Substance: RIBAVIRIN
     Indication: HEPATITIS C
     Route: 048
     Dates: start: 20151024, end: 20151228
  8. IRON [Concomitant]
     Active Substance: IRON
  9. PEPCID [Concomitant]
     Active Substance: FAMOTIDINE
  10. BUMEX [Concomitant]
     Active Substance: BUMETANIDE
  11. HUMULIN NOS [Concomitant]
     Active Substance: INSULIN HUMAN
  12. AMLODIPINE [Concomitant]
     Active Substance: AMLODIPINE BESYLATE
  13. VITAMIN C [Concomitant]
     Active Substance: ASCORBIC ACID
  14. INDERAL [Concomitant]
     Active Substance: PROPRANOLOL HYDROCHLORIDE

REACTIONS (2)
  - Constipation [None]
  - Acute kidney injury [None]

NARRATIVE: CASE EVENT DATE: 20160121
